FAERS Safety Report 7621180 (Version 3)
Quarter: 2013Q4

REPORT INFORMATION
  Report Type: Spontaneous
  Country: US (occurrence: US)
  Receive Date: 20101008
  Receipt Date: 20131216
  Transmission Date: 20140711
  Serious: Yes (Hospitalization)
  Sender: FDA-Public Use
  Company Number: US-BAYER-201035890NA

PATIENT
  Age: 20 Year
  Sex: Female
  Weight: 105.22 kg

DRUGS (3)
  1. YASMIN [Suspect]
     Indication: CONTRACEPTION
     Dosage: UNK UNK, UNK
     Route: 048
     Dates: start: 200204, end: 2007
  2. YAZ [Suspect]
     Indication: CONTRACEPTION
     Dosage: UNK
     Dates: start: 2007, end: 201006
  3. GIANVI [Suspect]
     Dosage: UNK
     Dates: start: 2007, end: 2010

REACTIONS (4)
  - Cholecystitis acute [None]
  - Cholelithiasis [None]
  - Gallbladder cholesterolosis [None]
  - Abdominal pain upper [None]
